FAERS Safety Report 16779000 (Version 1)
Quarter: 2019Q3

REPORT INFORMATION
  Report Type: Spontaneous
  Country: US (occurrence: US)
  Receive Date: 20190906
  Receipt Date: 20190906
  Transmission Date: 20191005
  Serious: No
  Sender: FDA-Public Use
  Company Number: US-TEVA-2019-US-1090413

PATIENT
  Sex: Female
  Weight: 104.42 kg

DRUGS (1)
  1. AUSTEDO [Suspect]
     Active Substance: DEUTETRABENAZINE
     Indication: HUNTINGTON^S DISEASE
     Dosage: 9 MG + 12 MG, STARTED 6 WEEKS AGO
     Route: 048

REACTIONS (1)
  - Rhinorrhoea [Unknown]
